FAERS Safety Report 5713580-0 (Version None)
Quarter: 2008Q2

REPORT INFORMATION
  Report Type: 
  Country: None (occurrence: None)
  Receive Date: 20080422
  Receipt Date: 20080416
  Transmission Date: 20081010
  Serious: Yes (Other)
  Sender: FDA-Public Use
  Company Number: US-PFIZER INC-2008033544

PATIENT
  Sex: Female
  Weight: 61.7 kg

DRUGS (4)
  1. BEXTRA [Suspect]
  2. DEMEROL [Concomitant]
  3. ACETAMINOPHEN [Concomitant]
  4. VIOXX [Concomitant]

REACTIONS (2)
  - CEREBROVASCULAR ACCIDENT [None]
  - INJURY [None]
